FAERS Safety Report 9695016 (Version 1)
Quarter: 2013Q4

REPORT INFORMATION
  Report Type: Spontaneous
  Country: VE (occurrence: VE)
  Receive Date: 20131119
  Receipt Date: 20131119
  Transmission Date: 20140711
  Serious: Yes (Other)
  Sender: FDA-Public Use
  Company Number: VE-JNJFOC-20131107786

PATIENT
  Sex: 0

DRUGS (3)
  1. LEVOFLOXACIN [Suspect]
     Indication: HELICOBACTER INFECTION
     Dosage: 10 DAYS, ONE HOUR  BEFORE BREAKFAST AND ONE HOUR BEFORE BEDTIME.
     Route: 065
  2. AMOXICILLIN [Suspect]
     Indication: HELICOBACTER INFECTION
     Dosage: ONE HOUR BEFORE BREAKFAST AND ONE HOUR BEFORE BEDTIME
     Route: 065
  3. PROTON PUMP INHIBITORS [Suspect]
     Indication: HELICOBACTER INFECTION
     Dosage: ONE HOUR BEFORE BREAKFAST AND ONE HOUR BEFORE BEDTIME
     Route: 065

REACTIONS (3)
  - Drug resistance [Unknown]
  - Diarrhoea [Unknown]
  - Nausea [Unknown]
